FAERS Safety Report 25087986 (Version 5)
Quarter: 2025Q3

REPORT INFORMATION
  Report Type: Spontaneous
  Country: EU (occurrence: EU)
  Receive Date: 20250318
  Receipt Date: 20250819
  Transmission Date: 20251020
  Serious: Yes (Hospitalization, Other)
  Sender: ROCHE
  Company Number: EU-ROCHE-10000231167

PATIENT
  Age: 72 Year
  Sex: Female

DRUGS (5)
  1. RITUXIMAB [Suspect]
     Active Substance: RITUXIMAB
     Indication: Pemphigus
     Route: 042
     Dates: start: 2023, end: 2023
  2. IMURAN [Suspect]
     Active Substance: AZATHIOPRINE
     Indication: Pemphigus
     Route: 065
     Dates: start: 2023
  3. IMURAN [Suspect]
     Active Substance: AZATHIOPRINE
     Route: 065
     Dates: start: 2023
  4. PREDNISONE [Suspect]
     Active Substance: PREDNISONE
     Indication: Pemphigus
     Dosage: 1 MILLIGRAM PER GRAM, QD
     Route: 048
     Dates: start: 2023
  5. PREDNISONE [Suspect]
     Active Substance: PREDNISONE
     Dosage: 1.5 MILLIGRAM PER GRAM QD
     Route: 048
     Dates: start: 2023

REACTIONS (2)
  - COVID-19 [Unknown]
  - Myelosuppression [Unknown]

NARRATIVE: CASE EVENT DATE: 20230101
